FAERS Safety Report 8766725 (Version 1)
Quarter: 2012Q4

REPORT INFORMATION
  Report Type: 
  Country: US (occurrence: US)
  Receive Date: 20120904
  Receipt Date: 20120904
  Transmission Date: 20130627
  Serious: Yes (Hospitalization, Other)
  Sender: FDA-Public Use
  Company Number: US-BRISTOL-MYERS SQUIBB COMPANY-16907099

PATIENT
  Sex: Male

DRUGS (2)
  1. KENALOG-40 [Suspect]
     Dosage: total 5 shots
  2. PERCOCET [Concomitant]

REACTIONS (7)
  - Dyspnoea [Unknown]
  - Confusional state [Unknown]
  - Dehydration [Unknown]
  - Muscle spasms [Not Recovered/Not Resolved]
  - Abdominal pain upper [Not Recovered/Not Resolved]
  - Hyperhidrosis [Not Recovered/Not Resolved]
  - Asthenia [Unknown]
